FAERS Safety Report 6643033-7 (Version None)
Quarter: 2010Q1

REPORT INFORMATION
  Report Type: 
  Country: None (occurrence: None)
  Receive Date: 20100319
  Receipt Date: 20100309
  Transmission Date: 20100710
  Serious: Yes (Hospitalization)
  Sender: FDA-Public Use
  Company Number: B0641011A

PATIENT
  Sex: Female

DRUGS (4)
  1. AUGMENTIN '125' [Suspect]
     Indication: HERPES VIRUS INFECTION
     Dosage: 1G PER DAY
     Route: 048
     Dates: start: 20091231, end: 20091231
  2. ACYCLOVIR SODIUM [Suspect]
     Indication: HERPES VIRUS INFECTION
     Dosage: 800MG PER DAY
     Route: 048
     Dates: start: 20091231, end: 20091231
  3. ESTRADERM [Concomitant]
     Dosage: 25MCG PER DAY
  4. NEORECORMON [Concomitant]
     Dosage: 30U PER DAY
     Route: 058

REACTIONS (3)
  - DYSPNOEA [None]
  - PRURITUS [None]
  - RASH [None]
